FAERS Safety Report 25447784 (Version 2)
Quarter: 2025Q2

REPORT INFORMATION
  Report Type: Spontaneous
  Country: CN (occurrence: CN)
  Receive Date: 20250617
  Receipt Date: 20250623
  Transmission Date: 20250716
  Serious: Yes (Life-Threatening, Hospitalization, Other)
  Sender: PFIZER
  Company Number: CN-MLMSERVICE-20250609-PI535524-00120-1

PATIENT
  Age: 86 Year
  Sex: Female

DRUGS (4)
  1. GLIPIZIDE [Interacting]
     Active Substance: GLIPIZIDE
     Indication: Type 2 diabetes mellitus
     Dosage: 5 MG, FREQ:12 D;SUSTAINED RELEASE FOR THE PAST 5 YEARS
     Dates: start: 2017
  2. DICLOFENAC [Interacting]
     Active Substance: DICLOFENAC
     Indication: Pain management
     Dosage: 75 MG, FREQ:12 H
     Dates: start: 20220727, end: 202208
  3. RIVAROXABAN [Concomitant]
     Active Substance: RIVAROXABAN
     Indication: Anticoagulant therapy
     Dosage: 10 MG, 1X/DAY
     Dates: start: 202207, end: 202208
  4. METFORMIN [Concomitant]
     Active Substance: METFORMIN HYDROCHLORIDE
     Indication: Type 2 diabetes mellitus
     Dosage: 0.5 G, FREQ:12 H;FOR THE PAST 5 YEARS
     Dates: start: 2017

REACTIONS (6)
  - Hypoglycaemic coma [Recovered/Resolved]
  - Drug interaction [Recovered/Resolved]
  - Loss of consciousness [Recovered/Resolved]
  - Intestinal ischaemia [Recovered/Resolved]
  - Gastrointestinal haemorrhage [Recovered/Resolved]
  - Cerebral infarction [Recovered/Resolved]

NARRATIVE: CASE EVENT DATE: 20220801
